FAERS Safety Report 23527178 (Version 1)
Quarter: 2024Q1

REPORT INFORMATION
  Report Type: Spontaneous
  Country: US (occurrence: None)
  Receive Date: 20240215
  Receipt Date: 20240215
  Transmission Date: 20240410
  Serious: Yes (Other)
  Sender: FDA-Public Use
  Company Number: None

PATIENT
  Age: 38 Year
  Sex: Female
  Weight: 54.45 kg

DRUGS (3)
  1. BUPRENORPHINE AND NALOXONE [Suspect]
     Active Substance: BUPRENORPHINE HYDROCHLORIDE\NALOXONE HYDROCHLORIDE
     Indication: Drug dependence
     Dosage: FREQUENCY : DAILY;?
     Route: 048
  2. Buprenorphine-Naloxone 8-2mg tabs [Concomitant]
     Dates: start: 20231102, end: 20231122
  3. Buprenorphine-Naloxone 8-2mg tabs [Concomitant]
     Dates: start: 20240117, end: 20240130

REACTIONS (5)
  - Headache [None]
  - Nausea [None]
  - Vomiting [None]
  - Mouth ulceration [None]
  - Product dosage form issue [None]

NARRATIVE: CASE EVENT DATE: 20240215
